FAERS Safety Report 4815942-2 (Version None)
Quarter: 2005Q4

REPORT INFORMATION
  Report Type: 
  Country: None (occurrence: None)
  Receive Date: 20051031
  Receipt Date: 20050922
  Transmission Date: 20060501
  Serious: Yes (Death)
  Sender: FDA-Public Use
  Company Number: JP-SANOFI-SYNTHELABO-A01200507333

PATIENT
  Age: 55 Year
  Sex: Male

DRUGS (9)
  1. MYSLEE [Suspect]
     Indication: INSOMNIA
     Dosage: 5 MG
     Route: 048
     Dates: start: 20050702, end: 20050917
  2. CALTAN [Concomitant]
     Indication: DRUG USE FOR UNKNOWN INDICATION
     Dosage: 1.5 MG
     Route: 048
     Dates: start: 20050426
  3. RENAGEL [Concomitant]
     Indication: DRUG USE FOR UNKNOWN INDICATION
     Dosage: 3000 MG
     Route: 048
     Dates: start: 20050426
  4. PURSENNID [Concomitant]
     Indication: DRUG USE FOR UNKNOWN INDICATION
     Dosage: 36 MG
     Route: 048
     Dates: start: 20050426
  5. PAXIL [Concomitant]
     Indication: DRUG USE FOR UNKNOWN INDICATION
     Dosage: 10 MG
     Route: 048
     Dates: start: 20050531, end: 20050601
  6. DAI-KENCHU-TO [Concomitant]
     Indication: DRUG USE FOR UNKNOWN INDICATION
     Dosage: 5 G
     Route: 048
     Dates: start: 20050531
  7. RISUMIC [Concomitant]
     Indication: DRUG USE FOR UNKNOWN INDICATION
     Dosage: 10 MG
     Route: 048
  8. DEPAS [Concomitant]
     Indication: DRUG USE FOR UNKNOWN INDICATION
     Dosage: 3.5 MG
     Route: 048
     Dates: start: 20050702, end: 20050703
  9. PARIET [Concomitant]
     Indication: DRUG USE FOR UNKNOWN INDICATION
     Dosage: UNK
     Route: 048
     Dates: start: 20050804

REACTIONS (1)
  - DEPRESSED LEVEL OF CONSCIOUSNESS [None]
